FAERS Safety Report 7681852-9 (Version None)
Quarter: 2011Q3

REPORT INFORMATION
  Report Type: 
  Country: None (occurrence: None)
  Receive Date: 20110813
  Receipt Date: 20110221
  Transmission Date: 20111222
  Serious: Yes (Other)
  Sender: FDA-Public Use
  Company Number: US-BAYER-2010-006887

PATIENT
  Sex: Female
  Weight: 108.84 kg

DRUGS (37)
  1. MAGNEVIST [Suspect]
     Dosage: UNK
     Dates: start: 20041118
  2. MAGNEVIST [Suspect]
     Dosage: UNK
     Dates: start: 20050509
  3. MAGNEVIST [Suspect]
     Dosage: UNK
     Dates: start: 20050523
  4. CYCLOBENZAPRINE [Concomitant]
  5. OPTIMARK [Suspect]
  6. FERROUS SULFATE TAB [Concomitant]
  7. LASIX [Concomitant]
  8. MARIJUANA [Concomitant]
  9. MAGNEVIST [Suspect]
     Indication: NUCLEAR MAGNETIC RESONANCE IMAGING
     Dosage: UNK
     Dates: start: 20041001
  10. ASPIRIN [Concomitant]
  11. EPOGEN [Concomitant]
  12. GENGRAF [Concomitant]
  13. VALCYTE [Concomitant]
  14. MIDODRINE HYDROCHLORIDE [Concomitant]
  15. MAGNEVIST [Suspect]
     Indication: NUCLEAR MAGNETIC RESONANCE IMAGING ABDOMINAL
     Dosage: DAILY DOSE 20 ML
     Dates: start: 20070905, end: 20070905
  16. OMNISCAN [Suspect]
  17. LOPRESSOR [Concomitant]
  18. NORVASC [Concomitant]
  19. CYTOXAN [Concomitant]
  20. COUMADIN [Concomitant]
  21. PREDNISONE [Concomitant]
  22. HYPAQUE-M [MEGLUMINE AMIDOTRIZOATE] [Suspect]
     Indication: COMPUTERISED TOMOGRAM ABDOMEN
     Dosage: UNK
     Route: 048
     Dates: start: 20041006, end: 20041006
  23. PROHANCE [Suspect]
  24. IMMUNE GLOBULIN NOS [Concomitant]
     Route: 042
  25. LISINOPRIL [Concomitant]
  26. CELLCEPT [Concomitant]
  27. RENAGEL [Concomitant]
  28. CONTRAST MEDIA [Concomitant]
     Indication: COMPUTERISED TOMOGRAM HEAD
     Dosage: UNK
     Route: 042
     Dates: start: 20041012, end: 20041012
  29. XANAX [Concomitant]
  30. GABAPENTIN [Concomitant]
  31. SENSIPAR [Concomitant]
  32. MAGNEVIST [Suspect]
     Dosage: UNK
     Dates: start: 20041007
  33. MAGNEVIST [Suspect]
     Dosage: UNK
     Dates: start: 20050526
  34. OMNIPAQUE 140 [Suspect]
     Indication: COMPUTERISED TOMOGRAM ABDOMEN
     Dosage: 150 ML, UNK
     Dates: start: 20040930, end: 20040930
  35. MULTIHANCE [Suspect]
  36. CONTRAST MEDIA [Concomitant]
     Indication: COMPUTERISED TOMOGRAM ABDOMEN
     Dosage: UNK
     Route: 048
     Dates: start: 20050506, end: 20050506
  37. CONTRAST MEDIA [Concomitant]
     Dosage: UNK
     Route: 042
     Dates: start: 20050506, end: 20050506

REACTIONS (35)
  - ERYTHEMA [None]
  - MUSCULOSKELETAL STIFFNESS [None]
  - MUSCULOSKELETAL PAIN [None]
  - PAIN IN EXTREMITY [None]
  - SKIN DISORDER [None]
  - SOFT TISSUE DISORDER [None]
  - BURNING SENSATION [None]
  - INJURY [None]
  - JOINT RANGE OF MOTION DECREASED [None]
  - EMOTIONAL DISTRESS [None]
  - SKIN INDURATION [None]
  - JOINT STIFFNESS [None]
  - LIMB DISCOMFORT [None]
  - ANXIETY [None]
  - RASH PAPULAR [None]
  - PAIN [None]
  - STRESS [None]
  - DYSSTASIA [None]
  - RENAL FAILURE ACUTE [None]
  - PROTEINURIA [None]
  - SKIN HYPERPIGMENTATION [None]
  - MYOSCLEROSIS [None]
  - RENAL FAILURE CHRONIC [None]
  - RENAL CORTICAL NECROSIS [None]
  - SKIN DISCOLOURATION [None]
  - NEPHROGENIC SYSTEMIC FIBROSIS [None]
  - OEDEMA PERIPHERAL [None]
  - SCAR [None]
  - RASH ERYTHEMATOUS [None]
  - ARTHRALGIA [None]
  - SKIN HYPERTROPHY [None]
  - UPPER EXTREMITY MASS [None]
  - OEDEMA [None]
  - MUSCLE FATIGUE [None]
  - RENAL TUBULAR NECROSIS [None]
